FAERS Safety Report 16233007 (Version 1)
Quarter: 2019Q2

REPORT INFORMATION
  Report Type: Spontaneous
  Country: US (occurrence: US)
  Receive Date: 20190424
  Receipt Date: 20190424
  Transmission Date: 20190711
  Serious: No
  Sender: FDA-Public Use
  Company Number: US-SA-2019SA110556

PATIENT
  Sex: Female

DRUGS (10)
  1. PRALUENT [Suspect]
     Active Substance: ALIROCUMAB
     Dosage: UNK UNK, QOW
  2. PRALUENT [Suspect]
     Active Substance: ALIROCUMAB
     Dosage: UNK UNK, EVERY 16 DAYS
  3. PAROXETIN [PAROXETINE] [Concomitant]
     Active Substance: PAROXETINE
  4. OMEPRAZOLE. [Concomitant]
     Active Substance: OMEPRAZOLE
  5. LORAZEPAM. [Concomitant]
     Active Substance: LORAZEPAM
  6. LISINOPRIL. [Concomitant]
     Active Substance: LISINOPRIL
  7. ISOSORBIDE MONONITRATE. [Concomitant]
     Active Substance: ISOSORBIDE MONONITRATE
  8. BENZONATATE. [Concomitant]
     Active Substance: BENZONATATE
  9. AMLODIPINE BESILATE [Concomitant]
     Active Substance: AMLODIPINE BESYLATE
  10. METOPROLOL TARTRATE. [Concomitant]
     Active Substance: METOPROLOL TARTRATE

REACTIONS (2)
  - Product use issue [Unknown]
  - Myalgia [Unknown]
